FAERS Safety Report 14770219 (Version 4)
Quarter: 2018Q2

REPORT INFORMATION
  Report Type: Spontaneous
  Country: US (occurrence: US)
  Receive Date: 20180417
  Receipt Date: 20180516
  Transmission Date: 20180711
  Serious: Yes (Hospitalization, Other)
  Sender: FDA-Public Use
  Company Number: US-SAOL THERAPEUTICS-2018SAO00519

PATIENT
  Age: 41 Year
  Sex: Male
  Weight: 79.37 kg

DRUGS (6)
  1. COMPOUNDED BACLOFEN [Suspect]
     Active Substance: BACLOFEN
     Indication: MUSCLE SPASTICITY
     Dosage: 78.45 ?G, \DAY
     Route: 037
     Dates: start: 20180212
  2. COMPOUNDED BACLOFEN [Suspect]
     Active Substance: BACLOFEN
     Dosage: 80.95 ?G, \DAY
     Route: 037
     Dates: start: 20180420
  3. COMPOUNDED BACLOFEN [Suspect]
     Active Substance: BACLOFEN
     Dosage: 90 ?G, \DAY
     Route: 037
  4. GABAPENTIN. [Concomitant]
     Active Substance: GABAPENTIN
  5. COMPOUNDED BACLOFEN [Suspect]
     Active Substance: BACLOFEN
     Dosage: 75 UNK, UNK
     Route: 037
  6. COMPOUNDED BACLOFEN [Suspect]
     Active Substance: BACLOFEN
     Dosage: 81 MG, \DAY
     Route: 037

REACTIONS (6)
  - Therapy non-responder [Recovering/Resolving]
  - Fat tissue increased [Not Recovered/Not Resolved]
  - Muscle tightness [Unknown]
  - Hospitalisation [Unknown]
  - Gait disturbance [Unknown]
  - Dysstasia [Unknown]

NARRATIVE: CASE EVENT DATE: 2018
